FAERS Safety Report 10033851 (Version 2)
Quarter: 2014Q1

REPORT INFORMATION
  Report Type: Spontaneous
  Country: US (occurrence: US)
  Receive Date: 20140325
  Receipt Date: 20140325
  Transmission Date: 20141002
  Serious: Yes (Hospitalization)
  Sender: FDA-Public Use
  Company Number: US-DRREDDYS-USA/USA/13/0036223

PATIENT
  Age: 50 Year
  Sex: Male

DRUGS (3)
  1. ZIPRASIDONE [Suspect]
     Indication: BIPOLAR I DISORDER
     Dosage: 60 MG IN THE MORNING AND 80 MG AT NIGHT
     Route: 065
  2. DIVALPROEX SODIUM [Suspect]
     Indication: BIPOLAR I DISORDER
     Route: 065
  3. SILDENAFIL [Concomitant]
     Indication: ERECTILE DYSFUNCTION
     Route: 065

REACTIONS (1)
  - Priapism [Recovered/Resolved]
